FAERS Safety Report 4319559-8 (Version None)
Quarter: 2004Q1

REPORT INFORMATION
  Report Type: 
  Country: None (occurrence: None)
  Receive Date: 20040315
  Receipt Date: 20040301
  Transmission Date: 20041129
  Serious: Yes (Death)
  Sender: FDA-Public Use
  Company Number: 04P-163-0252011-00

PATIENT
  Age: 55 Year
  Sex: Female

DRUGS (5)
  1. HUMIRA [Suspect]
     Indication: RHEUMATOID ARTHRITIS
     Dosage: 40 MG, 1 IN 2 WK, SUBCUTANEOUS
     Route: 058
     Dates: end: 20040201
  2. METHOTREXATE SODIUM [Concomitant]
  3. CLOPIDOGREL BISULFATE [Concomitant]
  4. ZOCOR [Concomitant]
  5. METOPROLOL SUCCINATE [Concomitant]

REACTIONS (4)
  - HEPATITIS [None]
  - LUNG DISORDER [None]
  - RESPIRATORY FAILURE [None]
  - SYSTEMIC CANDIDA [None]
